FAERS Safety Report 12397388 (Version 3)
Quarter: 2016Q2

REPORT INFORMATION
  Report Type: Spontaneous
  Country: US (occurrence: US)
  Receive Date: 20160524
  Receipt Date: 20160617
  Transmission Date: 20160815
  Serious: No
  Sender: FDA-Public Use
  Company Number: US-PFIZER INC-2016270599

PATIENT
  Age: 32 Year
  Sex: Male
  Weight: 86 kg

DRUGS (3)
  1. ALPRAZOLAM. [Suspect]
     Active Substance: ALPRAZOLAM
     Indication: PANIC DISORDER
     Dosage: 0.5 MG, ALTERNATE DAY
     Route: 048
     Dates: start: 2006
  2. ALPRAZOLAM. [Suspect]
     Active Substance: ALPRAZOLAM
     Indication: SOCIAL ANXIETY DISORDER
     Dosage: 1 MG, AS NEEDED
     Route: 048
  3. ALPRAZOLAM. [Suspect]
     Active Substance: ALPRAZOLAM
     Indication: SLEEP DISORDER

REACTIONS (4)
  - Hypometabolism [Not Recovered/Not Resolved]
  - Drug clearance decreased [Unknown]
  - Blood alcohol increased [Unknown]
  - Breath alcohol test positive [Unknown]

NARRATIVE: CASE EVENT DATE: 20160427
